FAERS Safety Report 7620889-2 (Version None)
Quarter: 2011Q3

REPORT INFORMATION
  Report Type: 
  Country: None (occurrence: None)
  Receive Date: 20110719
  Receipt Date: 20110714
  Transmission Date: 20111222
  Serious: Yes (Hospitalization)
  Sender: FDA-Public Use
  Company Number: DE-PFIZER INC-2011160643

PATIENT
  Age: 84 Year
  Sex: Female

DRUGS (7)
  1. VENLAFAXINE HYDROCHLORIDE [Suspect]
     Dosage: 150 MG, 1X/DAY
     Route: 048
  2. VENLAFAXINE HYDROCHLORIDE [Suspect]
     Dosage: 187.5 MG, 1X/DAY
     Route: 048
     Dates: start: 20110302
  3. ASPIRIN [Suspect]
     Dosage: UNK
  4. ZOLPIDEM [Suspect]
     Indication: SLEEP DISORDER
     Dosage: 10 MG, SINGLE
     Route: 048
     Dates: start: 20110307, end: 20110307
  5. METOPROLOL [Concomitant]
     Dosage: 50 MG, 1X/DAY
     Route: 048
  6. HYDROCHLOROTHIAZIDE [Concomitant]
     Dosage: 25 MG, 1X/DAY
     Route: 048
  7. MUCOFALK [Concomitant]
     Dosage: 1 DF, 1X/DAY

REACTIONS (1)
  - FALL [None]
